FAERS Safety Report 15146798 (Version 1)
Quarter: 2018Q3

REPORT INFORMATION
  Report Type: Spontaneous
  Country: US (occurrence: US)
  Receive Date: 20180716
  Receipt Date: 20180716
  Transmission Date: 20181010
  Serious: Yes (Other)
  Sender: FDA-Public Use
  Company Number: US-STRIDES ARCOLAB LIMITED-2018SP002974

PATIENT

DRUGS (2)
  1. MYCOPHENOLATE MOFETIL. [Suspect]
     Active Substance: MYCOPHENOLATE MOFETIL
     Indication: CHOROIDITIS
     Dosage: UNK
     Route: 065
  2. CYCLOSPORINE. [Concomitant]
     Active Substance: CYCLOSPORINE
     Indication: CHOROIDITIS
     Dosage: UNK
     Route: 065

REACTIONS (2)
  - Off label use [Unknown]
  - Leukopenia [Unknown]
